FAERS Safety Report 5130619-4 (Version None)
Quarter: 2006Q4

REPORT INFORMATION
  Report Type: 
  Country: None (occurrence: None)
  Receive Date: 20061018
  Receipt Date: 20061018
  Transmission Date: 20070319
  Serious: Yes (Hospitalization)
  Sender: FDA-Public Use
  Company Number: None

PATIENT
  Age: 19 Year
  Sex: Female
  Weight: 110.6777 kg

DRUGS (1)
  1. DULOXETINE [Suspect]
     Indication: MAJOR DEPRESSION
     Dosage: 90 MG QD PO
     Route: 048
     Dates: start: 20060714, end: 20061012

REACTIONS (2)
  - CHOLELITHIASIS [None]
  - PANCREATITIS ACUTE [None]
